FAERS Safety Report 9239293 (Version 2)
Quarter: 2013Q2

REPORT INFORMATION
  Report Type: Report from Study
  Country: NL (occurrence: NL)
  Receive Date: 20130418
  Receipt Date: 20130605
  Transmission Date: 20140414
  Serious: Yes (Life-Threatening, Hospitalization, Disabling)
  Sender: FDA-Public Use
  Company Number: NL-ABBOTT-13P-114-1077407-00

PATIENT
  Age: 37 Year
  Sex: Male
  Weight: 61 kg

DRUGS (3)
  1. HUMIRA [Suspect]
     Indication: PSORIASIS
     Route: 058
     Dates: start: 20091001, end: 20130326
  2. HUMIRA [Suspect]
     Route: 058
     Dates: start: 20130409
  3. CICLOSPORIN [Concomitant]
     Indication: PSORIASIS
     Dates: start: 200908

REACTIONS (1)
  - Suicide attempt [Recovered/Resolved]
